FAERS Safety Report 8760286 (Version 2)
Quarter: 2012Q4

REPORT INFORMATION
  Report Type: Spontaneous
  Country: US (occurrence: None)
  Receive Date: 20120817
  Receipt Date: 20120905
  Transmission Date: 20130627
  Serious: Yes (Hospitalization)
  Sender: FDA-Public Use
  Company Number: 2012US-004319

PATIENT
  Age: 64 Year
  Sex: Female
  Weight: 81.9 kg

DRUGS (15)
  1. OMONTYS (PEGINESATIDE) SOLUTION FOR INJECTION [Suspect]
     Dosage: Q 4 weeks
     Route: 042
     Dates: start: 20120730, end: 20120730
  2. RENAPLEX VITAMINS (ASCORBIC ACID, BIOTIN, CYANOCOBALAMIN, FOLIC ACID, NICOTINAMIDE, PANTOTHENC ACID, PYRIDOXINE, RIBOFLAVIN, THIAMINE ZINC) [Concomitant]
  3. ASA (ACETYLSALICYLIC ACID) [Concomitant]
  4. FOLIC ACID (FOLIC ACID) [Concomitant]
  5. RANITIDINE (RANITIDINE) [Concomitant]
  6. FUROSEMIDE (FUROSEMIDE) [Concomitant]
  7. METOCLOPRAMIDE (METOCLOPRAMIDE) [Concomitant]
  8. ATENOLOL (ATENOLOL) [Concomitant]
  9. HYDROXYUREA (HYDROXYCARBAMIDE) [Concomitant]
  10. LEVOTHYROXINE (LEVOTHYROXINE) [Concomitant]
  11. ALLOPURINOL (ALLOPURINOL) [Concomitant]
  12. REVATIO (SILDENAFIL CITRATE) [Concomitant]
  13. NIFEDIPINE ER (NIFEDIPINE) [Concomitant]
  14. ZEMPLAR (PARICALCITOL) [Concomitant]
  15. HEPARIN (HEPARIN) [Concomitant]

REACTIONS (7)
  - Palpitations [None]
  - Dizziness [None]
  - Dyspnoea [None]
  - Type IV hypersensitivity reaction [None]
  - Dialysis related complication [None]
  - Malaise [None]
  - Abasia [None]
